FAERS Safety Report 6923150-4 (Version None)
Quarter: 2010Q3

REPORT INFORMATION
  Report Type: 
  Country: None (occurrence: None)
  Receive Date: 20100813
  Receipt Date: 20100714
  Transmission Date: 20110219
  Serious: Yes (Hospitalization)
  Sender: FDA-Public Use
  Company Number: SE-ROCHE-697503

PATIENT
  Sex: Female

DRUGS (1)
  1. TOCILIZUMAB [Suspect]
     Indication: RHEUMATOID ARTHRITIS
     Dosage: DRUG NAME: ROACTEMRA CONCENTRATION FOR SOLUTION FOR INFUSION 20 MG/ML
     Route: 042
     Dates: start: 20100330, end: 20100401

REACTIONS (2)
  - ASTHMA [None]
  - RASH ERYTHEMATOUS [None]
